FAERS Safety Report 9580452 (Version 2)
Quarter: 2013Q4

REPORT INFORMATION
  Report Type: Report from Study
  Country: CA (occurrence: CA)
  Receive Date: 20131002
  Receipt Date: 20131002
  Transmission Date: 20140711
  Serious: Yes (Other)
  Sender: FDA-Public Use
  Company Number: CA-BAYER-2013-107735

PATIENT
  Age: 31 Year
  Sex: Female

DRUGS (1)
  1. MIRENA [Suspect]
     Indication: CONTRACEPTION
     Dosage: 20 MCG/24HR, CONT
     Route: 015
     Dates: start: 201210, end: 20130809

REACTIONS (11)
  - Genital haemorrhage [None]
  - Device expulsion [None]
  - Dyspareunia [None]
  - Polymenorrhoea [None]
  - Menorrhagia [None]
  - Metrorrhagia [None]
  - Fall [None]
  - Concussion [None]
  - Anaemia [None]
  - Haemoglobin decreased [None]
  - Nervousness [None]
